FAERS Safety Report 5960155-4 (Version None)
Quarter: 2008Q4

REPORT INFORMATION
  Report Type: 
  Country: None (occurrence: None)
  Receive Date: 20081107
  Receipt Date: 20080324
  Transmission Date: 20090506
  Serious: Yes (Life-Threatening)
  Sender: FDA-Public Use
  Company Number: 2008BH002741

PATIENT
  Age: 5 Year
  Sex: Male

DRUGS (5)
  1. SUPRANE [Suspect]
     Indication: GENERAL ANAESTHESIA
     Dosage: INH
     Route: 055
  2. HALOTHANE [Suspect]
     Indication: GENERAL ANAESTHESIA
  3. SUCCINYLCHOLINE CHLORIDE [Suspect]
     Indication: GENERAL ANAESTHESIA
  4. ATROPINE [Concomitant]
  5. NITROUS OXIDE [Concomitant]

REACTIONS (1)
  - HYPERTHERMIA MALIGNANT [None]
